FAERS Safety Report 25804325 (Version 1)
Quarter: 2025Q3

REPORT INFORMATION
  Report Type: Spontaneous
  Country: EU (occurrence: EU)
  Receive Date: 20250915
  Receipt Date: 20250915
  Transmission Date: 20251020
  Serious: Yes (Other)
  Sender: MYLAN
  Company Number: EU-MYLANLABS-2025M1077679

PATIENT
  Sex: Male

DRUGS (20)
  1. PREGABALIN [Suspect]
     Active Substance: PREGABALIN
     Indication: Product used for unknown indication
     Dosage: 50 MILLIGRAM, BID
  2. PREGABALIN [Suspect]
     Active Substance: PREGABALIN
     Dosage: 50 MILLIGRAM, BID
  3. PREGABALIN [Suspect]
     Active Substance: PREGABALIN
     Dosage: 50 MILLIGRAM, BID
     Route: 065
  4. PREGABALIN [Suspect]
     Active Substance: PREGABALIN
     Dosage: 50 MILLIGRAM, BID
     Route: 065
  5. PREGABALIN [Suspect]
     Active Substance: PREGABALIN
  6. PREGABALIN [Suspect]
     Active Substance: PREGABALIN
  7. PREGABALIN [Suspect]
     Active Substance: PREGABALIN
     Route: 065
  8. PREGABALIN [Suspect]
     Active Substance: PREGABALIN
     Route: 065
  9. XIPAMIDE [Suspect]
     Active Substance: XIPAMIDE
     Indication: Product used for unknown indication
  10. XIPAMIDE [Suspect]
     Active Substance: XIPAMIDE
     Route: 065
  11. XIPAMIDE [Suspect]
     Active Substance: XIPAMIDE
     Route: 065
  12. XIPAMIDE [Suspect]
     Active Substance: XIPAMIDE
  13. TAPENTADOL [Concomitant]
     Active Substance: TAPENTADOL
  14. TAPENTADOL [Concomitant]
     Active Substance: TAPENTADOL
  15. TAPENTADOL [Concomitant]
     Active Substance: TAPENTADOL
     Route: 065
  16. TAPENTADOL [Concomitant]
     Active Substance: TAPENTADOL
     Route: 065
  17. TAPENTADOL [Concomitant]
     Active Substance: TAPENTADOL
  18. TAPENTADOL [Concomitant]
     Active Substance: TAPENTADOL
  19. TAPENTADOL [Concomitant]
     Active Substance: TAPENTADOL
     Route: 065
  20. TAPENTADOL [Concomitant]
     Active Substance: TAPENTADOL
     Route: 065

REACTIONS (3)
  - Renal failure [Unknown]
  - General physical health deterioration [Unknown]
  - Drug ineffective [Unknown]
